FAERS Safety Report 23114814 (Version 2)
Quarter: 2023Q4

REPORT INFORMATION
  Report Type: Spontaneous
  Country: US (occurrence: US)
  Receive Date: 20231027
  Receipt Date: 20231221
  Transmission Date: 20240110
  Serious: Yes (Other)
  Sender: FDA-Public Use
  Company Number: US-BAYER-2023A150947

PATIENT
  Age: 64 Year
  Sex: Female

DRUGS (2)
  1. BETASERON [Suspect]
     Active Substance: INTERFERON BETA-1B
     Dosage: UNK
  2. DEVICE [Suspect]
     Active Substance: DEVICE

REACTIONS (16)
  - Multiple sclerosis [None]
  - Incorrect dose administered by device [None]
  - Skin irritation [None]
  - Skin texture abnormal [None]
  - Injection site erythema [None]
  - Injection site warmth [None]
  - Injection site discolouration [None]
  - Injection site discharge [None]
  - Injection site pain [None]
  - Influenza like illness [None]
  - Fatigue [None]
  - Chills [None]
  - Feeling cold [None]
  - Brain fog [None]
  - Fall [None]
  - Gait disturbance [None]

NARRATIVE: CASE EVENT DATE: 20230101
